FAERS Safety Report 9061397 (Version 2)
Quarter: 2013Q3

REPORT INFORMATION
  Report Type: Spontaneous
  Country: PL (occurrence: PL)
  Receive Date: 20130204
  Receipt Date: 20130821
  Transmission Date: 20140515
  Serious: Yes (Death)
  Sender: FDA-Public Use
  Company Number: PL-CELGENEUS-129-21880-13014227

PATIENT
  Sex: Male

DRUGS (7)
  1. REVLIMID [Suspect]
     Indication: 5Q MINUS SYNDROME
     Dosage: 10 MILLIGRAM
     Route: 048
     Dates: start: 20120917, end: 20120926
  2. REVLIMID [Suspect]
     Dosage: ON 08/10, 16/10, 18/10, 20/10, 22/10, 24/10, 26/10, 28/10, 30/10, 02/11 AND 04/11
     Route: 048
     Dates: start: 20121008, end: 20121104
  3. REVLIMID [Suspect]
     Route: 048
     Dates: start: 20121116, end: 20121130
  4. GLIMEPIRIDE [Concomitant]
     Indication: DIABETES MELLITUS
     Route: 048
     Dates: end: 201211
  5. TELMISARTAN [Concomitant]
     Indication: HYPERTENSION
     Route: 048
     Dates: end: 201211
  6. ENALAPRIL [Concomitant]
     Indication: HYPERTENSION
     Route: 048
     Dates: end: 201211
  7. INSULIN [Concomitant]
     Indication: DIABETES MELLITUS
     Route: 058
     Dates: start: 2002, end: 201212

REACTIONS (3)
  - Clostridium difficile colitis [Fatal]
  - Pneumonia [Fatal]
  - 5q minus syndrome [Fatal]
